FAERS Safety Report 21765031 (Version 1)
Quarter: 2022Q4

REPORT INFORMATION
  Report Type: Spontaneous
  Country: CA (occurrence: CA)
  Receive Date: 20221222
  Receipt Date: 20221222
  Transmission Date: 20230113
  Serious: Yes (Life-Threatening, Hospitalization, Other)
  Sender: FDA-Public Use
  Company Number: CA-AUROBINDO-AUR-APL-2022-053855

PATIENT
  Age: 35 Year
  Sex: Female

DRUGS (1)
  1. VENLAFAXINE HYDROCHLORIDE [Suspect]
     Active Substance: VENLAFAXINE HYDROCHLORIDE
     Indication: Depression
     Dosage: 112.5 MILLIGRAM, ONCE A DAY
     Route: 048

REACTIONS (5)
  - Dissociative disorder [Recovered/Resolved with Sequelae]
  - Gastric lavage [Recovered/Resolved with Sequelae]
  - Unresponsive to stimuli [Recovered/Resolved with Sequelae]
  - Suicidal ideation [Recovered/Resolved with Sequelae]
  - Suicide attempt [Recovered/Resolved with Sequelae]
